FAERS Safety Report 4470653-0 (Version None)
Quarter: 2004Q4

REPORT INFORMATION
  Report Type: 
  Country: None (occurrence: None)
  Receive Date: 20041006
  Receipt Date: 20041006
  Transmission Date: 20050328
  Serious: Yes (Other)
  Sender: FDA-Public Use
  Company Number: None

PATIENT
  Age: 46 Year
  Sex: Female
  Weight: 92.5338 kg

DRUGS (6)
  1. ZANAFLEX [Suspect]
     Indication: FIBROMYALGIA
     Dosage: 4 MG FOR QJS
  2. FLEXENT [Concomitant]
  3. CLONAZEPAM [Concomitant]
  4. WELLBUTRIN SR [Concomitant]
  5. GABITRIL [Concomitant]
  6. DURAGESIC [Concomitant]

REACTIONS (1)
  - PHARMACEUTICAL PRODUCT COMPLAINT [None]
